FAERS Safety Report 5515015-X (Version None)
Quarter: 2007Q4

REPORT INFORMATION
  Report Type: 
  Country: None (occurrence: None)
  Receive Date: 20071113
  Receipt Date: 20061114
  Transmission Date: 20080405
  Serious: No
  Sender: FDA-Public Use
  Company Number: A0627471A

PATIENT

DRUGS (2)
  1. CARVEDILOL [Suspect]
     Indication: DRUG USE FOR UNKNOWN INDICATION
     Route: 065
  2. IMITREX [Suspect]
     Route: 065

REACTIONS (2)
  - DRUG INEFFECTIVE [None]
  - HEADACHE [None]
